FAERS Safety Report 5466762-X (Version None)
Quarter: 2007Q3

REPORT INFORMATION
  Report Type: 
  Country: None (occurrence: None)
  Receive Date: 20070925
  Receipt Date: 20070914
  Transmission Date: 20080115
  Serious: Yes (Death, Other)
  Sender: FDA-Public Use
  Company Number: CA-ELI_LILLY_AND_COMPANY-CA200706000580

PATIENT
  Age: 92 Year
  Sex: Female

DRUGS (10)
  1. ZYPREXA ZYDIS [Suspect]
     Indication: DEMENTIA
     Dosage: 5 MG, EACH EVENING
     Route: 048
     Dates: start: 20061128, end: 20070107
  2. ADALAT [Concomitant]
  3. ACTONEL [Concomitant]
  4. ACETAMINOPHEN [Concomitant]
  5. CALCIUM CARBONATE [Concomitant]
     Dosage: 1250 MG, UNK
  6. VITAMIN D3 [Concomitant]
  7. CELEXA [Concomitant]
  8. LORAZEPAM [Concomitant]
  9. EXELON [Concomitant]
  10. GLICLAZIDE [Concomitant]
     Dosage: 80 MG, UNK

REACTIONS (10)
  - CEREBROVASCULAR ACCIDENT [None]
  - COMA [None]
  - DEATH [None]
  - DEHYDRATION [None]
  - DYSARTHRIA [None]
  - FACIAL PARESIS [None]
  - GAZE PALSY [None]
  - LETHARGY [None]
  - MOBILITY DECREASED [None]
  - UNRESPONSIVE TO STIMULI [None]
